FAERS Safety Report 8384143-6 (Version None)
Quarter: 2012Q2

REPORT INFORMATION
  Report Type: 
  Country: None (occurrence: None)
  Receive Date: 20120524
  Receipt Date: 20120514
  Transmission Date: 20120825
  Serious: Yes (Disabling)
  Sender: FDA-Public Use
  Company Number: NL-PFIZER INC-2011180992

PATIENT
  Age: 82 Year
  Sex: Female

DRUGS (7)
  1. ATENOLOL [Concomitant]
     Dosage: UNK
  2. CRESTOR [Concomitant]
     Dosage: UNK
  3. TAMOXIFEN CITRATE [Suspect]
     Indication: BREAST CANCER
     Dosage: UNK
     Dates: start: 20080404, end: 20100701
  4. ACENOCOUMAROL [Concomitant]
     Dosage: UNK
  5. EUTHYROX [Concomitant]
     Dosage: UNK
  6. EXEMESTANE [Suspect]
     Indication: BREAST CANCER
     Dosage: 25 MG, 1X/DAY
     Route: 048
     Dates: start: 20050607, end: 20080403
  7. CORDARONE [Concomitant]
     Dosage: UNK

REACTIONS (1)
  - OSTEONECROSIS [None]
